FAERS Safety Report 4399719-0 (Version None)
Quarter: 2004Q2

REPORT INFORMATION
  Report Type: 
  Country: None (occurrence: None)
  Receive Date: 20040608
  Receipt Date: 20040423
  Transmission Date: 20050107
  Serious: No
  Sender: FDA-Public Use
  Company Number: FROV000191

PATIENT
  Age: 39 Year
  Sex: Female

DRUGS (3)
  1. FROVA [Suspect]
     Indication: MIGRAINE
     Dosage: 2.5 MG; ORAL
     Route: 048
     Dates: start: 20040422, end: 20040422
  2. MAXALT (RIZATRIPTAN) [Concomitant]
  3. AXERT [Concomitant]

REACTIONS (2)
  - DIZZINESS [None]
  - MUSCULAR WEAKNESS [None]
